FAERS Safety Report 10070500 (Version 1)
Quarter: 2014Q2

REPORT INFORMATION
  Report Type: Spontaneous
  Country: CH (occurrence: None)
  Receive Date: 20140408
  Receipt Date: 20140408
  Transmission Date: 20141212
  Serious: Yes (Other)
  Sender: FDA-Public Use
  Company Number: 20140164

PATIENT
  Sex: Female

DRUGS (1)
  1. FERINJECT (FERRIC CARBOXYMALTOSE - VIFOR) [Suspect]
     Indication: PRODUCT USED FOR UNKNOWN INDICATION
     Dosage: 500 MG, 2 IN 2 TOTAL
     Dates: start: 20140224, end: 20140228

REACTIONS (10)
  - Extravasation [None]
  - Skin discolouration [None]
  - Headache [None]
  - Pain in extremity [None]
  - Chest pain [None]
  - Hypersensitivity [None]
  - Lymphoedema [None]
  - Burning sensation [None]
  - Swelling [None]
  - Device infusion issue [None]
